FAERS Safety Report 5321008-8 (Version None)
Quarter: 2007Q2

REPORT INFORMATION
  Report Type: 
  Country: None (occurrence: None)
  Receive Date: 20070510
  Receipt Date: 20070502
  Transmission Date: 20071010
  Serious: Yes (Other)
  Sender: FDA-Public Use
  Company Number: GB-NOVOPROD-263420

PATIENT

DRUGS (1)
  1. NOVOMIX 30 [Suspect]
     Indication: DIABETES MELLITUS

REACTIONS (1)
  - LEG AMPUTATION [None]
